FAERS Safety Report 4854188-9 (Version None)
Quarter: 2005Q4

REPORT INFORMATION
  Report Type: 
  Country: None (occurrence: None)
  Receive Date: 20051213
  Receipt Date: 20051130
  Transmission Date: 20060501
  Serious: Yes (Hospitalization, Other)
  Sender: FDA-Public Use
  Company Number: 2005163190

PATIENT
  Age: 11 Year
  Sex: Female

DRUGS (5)
  1. NORVASC [Suspect]
     Indication: HYPERTENSION
     Dosage: 2.5 MG (2.5 MG, 1 IN 1 D); 5 MG (2.5 MG, 2 IN 1 D); 2.5 MG (2.5 MG, 1 IN 1 D)
     Dates: start: 20040101, end: 20050101
  2. NORVASC [Suspect]
     Indication: HYPERTENSION
     Dosage: 2.5 MG (2.5 MG, 1 IN 1 D); 5 MG (2.5 MG, 2 IN 1 D); 2.5 MG (2.5 MG, 1 IN 1 D)
     Dates: start: 20050901, end: 20051101
  3. NORVASC [Suspect]
     Indication: HYPERTENSION
     Dosage: 2.5 MG (2.5 MG, 1 IN 1 D); 5 MG (2.5 MG, 2 IN 1 D); 2.5 MG (2.5 MG, 1 IN 1 D)
     Dates: start: 20051101, end: 20051122
  4. ATAZANAVIR (ATAZANAVIR) [Concomitant]
  5. SAQUINAVIR [Concomitant]

REACTIONS (12)
  - BLOOD PRESSURE INADEQUATELY CONTROLLED [None]
  - CONDITION AGGRAVATED [None]
  - CONVULSION [None]
  - FACE OEDEMA [None]
  - HAEMODIALYSIS [None]
  - HEADACHE [None]
  - HYPERTENSIVE ENCEPHALOPATHY [None]
  - MALIGNANT HYPERTENSION [None]
  - NEPHROPATHY [None]
  - OEDEMA [None]
  - OEDEMA PERIPHERAL [None]
  - PAIN [None]
